FAERS Safety Report 21852248 (Version 2)
Quarter: 2023Q1

REPORT INFORMATION
  Report Type: Spontaneous
  Country: IN (occurrence: IN)
  Receive Date: 20230112
  Receipt Date: 20230120
  Transmission Date: 20230418
  Serious: Yes (Other)
  Sender: FDA-Public Use
  Company Number: IN-ALKEM LABORATORIES LIMITED-IN-ALKEM-2022-15272

PATIENT
  Age: 61 Year
  Sex: Male

DRUGS (1)
  1. AZATHIOPRINE [Suspect]
     Active Substance: AZATHIOPRINE
     Indication: Eczema
     Dosage: 50 MILLIGRAMS, BID (TWICE A DAY)
     Route: 065

REACTIONS (1)
  - Cholestatic liver injury [Recovered/Resolved]
